FAERS Safety Report 24059651 (Version 1)
Quarter: 2024Q3

REPORT INFORMATION
  Report Type: Spontaneous
  Country: US (occurrence: None)
  Receive Date: 20240705
  Receipt Date: 20240705
  Transmission Date: 20241017
  Serious: Yes (Hospitalization)
  Sender: Public
  Company Number: None

PATIENT
  Age: 75 Year
  Sex: Male

DRUGS (2)
  1. ABIRATERONE ACETATE [Suspect]
     Active Substance: ABIRATERONE ACETATE
     Indication: Prostate cancer
     Dosage: FREQUENCY : DAILY;?
     Route: 048
     Dates: start: 202404
  2. PREDNISONE [Suspect]
     Active Substance: PREDNISONE
     Dates: start: 202404

REACTIONS (2)
  - Atrial fibrillation [None]
  - Pulmonary oedema [None]

NARRATIVE: CASE EVENT DATE: 20240630
